FAERS Safety Report 12234939 (Version 1)
Quarter: 2016Q2

REPORT INFORMATION
  Report Type: Spontaneous
  Country: US (occurrence: US)
  Receive Date: 20160404
  Receipt Date: 20160404
  Transmission Date: 20160815
  Serious: No
  Sender: FDA-Public Use
  Company Number: US-TEVA-571330USA

PATIENT
  Sex: Female

DRUGS (1)
  1. WARFARIN [Suspect]
     Active Substance: WARFARIN
     Route: 065
     Dates: start: 201504

REACTIONS (2)
  - Trichorrhexis [Unknown]
  - Alopecia [Unknown]

NARRATIVE: CASE EVENT DATE: 2015
